FAERS Safety Report 19954463 (Version 1)
Quarter: 2021Q4

REPORT INFORMATION
  Report Type: Report from Study
  Country: CA (occurrence: CA)
  Receive Date: 20211013
  Receipt Date: 20211013
  Transmission Date: 20220303
  Serious: Yes (Other)
  Sender: FDA-Public Use
  Company Number: CA-TEVA-2021-CA-1963685

PATIENT
  Age: 32 Year
  Sex: Female

DRUGS (2)
  1. AJOVY [Suspect]
     Active Substance: FREMANEZUMAB-VFRM
     Indication: Migraine prophylaxis
     Dosage: LAST INJECTION DATE 23-SEP-2021
     Route: 058
     Dates: start: 20210923
  2. CYMBALTA [Concomitant]
     Active Substance: DULOXETINE HYDROCHLORIDE

REACTIONS (5)
  - Syncope [Unknown]
  - Injection site pain [Unknown]
  - Fibromyalgia [Unknown]
  - Headache [Unknown]
  - Tongue biting [Unknown]

NARRATIVE: CASE EVENT DATE: 20210901
